FAERS Safety Report 10588708 (Version 1)
Quarter: 2014Q4

REPORT INFORMATION
  Report Type: Spontaneous
  Country: US (occurrence: MX)
  Receive Date: 20141117
  Receipt Date: 20141117
  Transmission Date: 20150529
  Serious: Yes (Death)
  Sender: FDA-Public Use
  Company Number: MX-FRI-1000072419

PATIENT
  Age: 70 Year
  Sex: Male

DRUGS (1)
  1. ROFLUMILAST [Suspect]
     Active Substance: ROFLUMILAST
     Indication: CHRONIC OBSTRUCTIVE PULMONARY DISEASE
     Dosage: 500 MCG
     Route: 048
     Dates: start: 201310

REACTIONS (6)
  - Back pain [Fatal]
  - Death [Fatal]
  - Fatigue [Fatal]
  - Abnormal faeces [Fatal]
  - Tremor [Fatal]
  - Cardiomegaly [Fatal]

NARRATIVE: CASE EVENT DATE: 201310
